FAERS Safety Report 4697968-5 (Version None)
Quarter: 2005Q2

REPORT INFORMATION
  Report Type: 
  Country: None (occurrence: None)
  Receive Date: 20050621
  Receipt Date: 20050606
  Transmission Date: 20051028
  Serious: No
  Sender: FDA-Public Use
  Company Number: USA050598886

PATIENT
  Age: 26 Year
  Sex: Female

DRUGS (6)
  1. STRATTERA [Suspect]
     Indication: ATTENTION DEFICIT/HYPERACTIVITY DISORDER
     Dosage: 80 MG AY
  2. EFFEXOR XR [Concomitant]
  3. ETHINYL ESTRADIOL W/NORGESTREL [Concomitant]
  4. ELAVIL (AMITRIPTYLINE ALT/SGPT, ALANINE AMINOTRANSFERASE/68 [Concomitant]
  5. AST/SGOT, ASPARTATE AMINOTRANSFERASE/ 28 [Concomitant]
  6. ALT/SGPT, ALANINE AMINOTRANSFERASE/46 [Concomitant]

REACTIONS (2)
  - ALANINE AMINOTRANSFERASE INCREASED [None]
  - ASPARTATE AMINOTRANSFERASE INCREASED [None]
